FAERS Safety Report 8712132 (Version 6)
Quarter: 2012Q4

REPORT INFORMATION
  Report Type: 
  Country: US (occurrence: US)
  Receive Date: 20120807
  Receipt Date: 20121121
  Transmission Date: 20130627
  Serious: Yes (Hospitalization, Other)
  Sender: FDA-Public Use
  Company Number: US-BAYER-2012-079300

PATIENT
  Age: 58 Year
  Sex: Male
  Weight: 99.77 kg

DRUGS (2)
  1. ALEVE CAPLET/TABLET,MIDOL EXTENDED RELIEF CAPLET [Suspect]
     Indication: PAIN IN ANKLE
     Dosage: 2 DF, PRN
     Route: 048
     Dates: end: 20120802
  2. XANAX [Concomitant]

REACTIONS (20)
  - Eye pruritus [Recovered/Resolved]
  - Lip swelling [Recovered/Resolved]
  - Pharyngeal oedema [Recovered/Resolved]
  - Pruritus [Recovered/Resolved]
  - Dyspnoea [Recovered/Resolved]
  - Eye pruritus [Recovered/Resolved]
  - Lip swelling [Recovered/Resolved]
  - Pharyngeal oedema [Recovered/Resolved]
  - Pruritus generalised [Recovered/Resolved]
  - Pruritus generalised [Recovered/Resolved]
  - Swelling face [Recovered/Resolved]
  - Swelling face [Recovered/Resolved]
  - Pruritus [Recovered/Resolved]
  - Dyspnoea [Recovered/Resolved]
  - Hypersensitivity [Recovered/Resolved]
  - Chest discomfort [Recovered/Resolved]
  - Coma [Recovered/Resolved]
  - Sluggishness [Not Recovered/Not Resolved]
  - Blood pressure decreased [Recovered/Resolved]
  - Shock [Recovered/Resolved]
